FAERS Safety Report 7656931-2 (Version None)
Quarter: 2011Q3

REPORT INFORMATION
  Report Type: 
  Country: None (occurrence: None)
  Receive Date: 20110804
  Receipt Date: 20110725
  Transmission Date: 20111222
  Serious: Yes (Hospitalization)
  Sender: FDA-Public Use
  Company Number: FR-EISAI INC-E7389-01327-CLI-FR

PATIENT
  Sex: Female
  Weight: 66 kg

DRUGS (4)
  1. EPIRUBICIN HYDROCHLORIDE [Suspect]
     Indication: BREAST CANCER
     Route: 041
     Dates: start: 20110509
  2. ALDACTAZINE [Concomitant]
  3. TENSIMATE [Concomitant]
  4. FENOFIBRATE [Concomitant]

REACTIONS (1)
  - GENERAL PHYSICAL CONDITION ABNORMAL [None]
